FAERS Safety Report 18527941 (Version 1)
Quarter: 2020Q4

REPORT INFORMATION
  Report Type: Spontaneous
  Country: US (occurrence: US)
  Receive Date: 20201120
  Receipt Date: 20201120
  Transmission Date: 20210114
  Serious: No
  Sender: FDA-Public Use
  Company Number: US-TAKEDA-2020TUS048294

PATIENT
  Sex: Female
  Weight: 63.49 kg

DRUGS (17)
  1. VITAMIN D [ERGOCALCIFEROL] [Concomitant]
     Active Substance: ERGOCALCIFEROL
  2. VITAMIN C [Concomitant]
     Active Substance: ASCORBIC ACID
  3. PREDNISONE. [Concomitant]
     Active Substance: PREDNISONE
  4. JANUVIA [Concomitant]
     Active Substance: SITAGLIPTIN PHOSPHATE
  5. METANX [Concomitant]
     Active Substance: LEVOMEFOLATE CALCIUM\METHYLCOBALAMIN\PYRIDOXAL PHOSPHATE ANHYDROUS
  6. NORMAL SALINE [Concomitant]
     Active Substance: SODIUM CHLORIDE
  7. EPINEPHRINE. [Concomitant]
     Active Substance: EPINEPHRINE
  8. PROGESTERONE. [Concomitant]
     Active Substance: PROGESTERONE
  9. ACETAMINOPHEN. [Concomitant]
     Active Substance: ACETAMINOPHEN
  10. DEXTROSE. [Concomitant]
     Active Substance: DEXTROSE
  11. LIDOCAINE. [Concomitant]
     Active Substance: LIDOCAINE
  12. PRENATAL [Concomitant]
     Active Substance: VITAMINS
  13. GAMMAGARD LIQUID [Suspect]
     Active Substance: HUMAN IMMUNOGLOBULIN G
     Indication: IMMUNOGLOBULINS INCREASED
     Dosage: 25 GRAM
     Route: 042
     Dates: start: 20201026
  14. DIPHENHYDRAMINE. [Concomitant]
     Active Substance: DIPHENHYDRAMINE
  15. HYDROXYCHLOROQUINE [Concomitant]
     Active Substance: HYDROXYCHLOROQUINE
  16. ALPHA LIPOIC ACID [Concomitant]
     Active Substance: .ALPHA.-LIPOIC ACID
  17. ESTRADIOL. [Concomitant]
     Active Substance: ESTRADIOL

REACTIONS (1)
  - Headache [Unknown]
